FAERS Safety Report 15673924 (Version 1)
Quarter: 2018Q4

REPORT INFORMATION
  Report Type: Spontaneous
  Country: CZ (occurrence: CZ)
  Receive Date: 20181129
  Receipt Date: 20181129
  Transmission Date: 20190205
  Serious: Yes (Life-Threatening, Hospitalization, Other)
  Sender: FDA-Public Use
  Company Number: CZ-JAZZ-2018-CZ-017163

PATIENT
  Age: 4 Year
  Sex: Male
  Weight: 17.2 kg

DRUGS (4)
  1. DOXORUBICIN [Concomitant]
     Active Substance: DOXORUBICIN
     Indication: PRODUCT USED FOR UNKNOWN INDICATION
  2. VINCRISTIN [Concomitant]
     Active Substance: VINCRISTINE
     Indication: PRODUCT USED FOR UNKNOWN INDICATION
  3. METHOTREXATE. [Concomitant]
     Active Substance: METHOTREXATE
  4. ERWINASE [Suspect]
     Active Substance: ASPARAGINASE ERWINIA CHRYSANTHEMI
     Indication: ACUTE LYMPHOCYTIC LEUKAEMIA
     Dosage: 13670 IU, 7 TIMES EVERY OTHER DAY, NOW IT WAS THE 3RD DOSE
     Route: 042
     Dates: start: 20181109, end: 20181113

REACTIONS (4)
  - Oropharyngeal pain [Recovering/Resolving]
  - Flushing [Recovering/Resolving]
  - Dyspnoea [Recovering/Resolving]
  - Anaphylactic reaction [Recovering/Resolving]

NARRATIVE: CASE EVENT DATE: 20181113
